FAERS Safety Report 4849319-0 (Version None)
Quarter: 2005Q4

REPORT INFORMATION
  Report Type: 
  Country: None (occurrence: None)
  Receive Date: 20051207
  Receipt Date: 20051123
  Transmission Date: 20060501
  Serious: Yes (Death)
  Sender: FDA-Public Use
  Company Number: 051130-0001104

PATIENT
  Age: 3 Year
  Sex: Male

DRUGS (4)
  1. DACTINOMYCIN [Suspect]
     Indication: RHABDOMYOSARCOMA
     Dosage: IV
     Route: 042
  2. VINCRISTINE SULFATE [Suspect]
     Indication: RHABDOMYOSARCOMA
     Dosage: IV
     Route: 042
  3. CYCLOPHOSPHAMIDE [Suspect]
     Indication: RHABDOMYOSARCOMA
     Dosage: IV
     Route: 042
  4. RIBAVIRIN [Concomitant]

REACTIONS (6)
  - ADENOVIRUS INFECTION [None]
  - CARDIAC FAILURE [None]
  - HAEMATURIA [None]
  - HEPATIC FAILURE [None]
  - PERICARDITIS [None]
  - WHITE BLOOD CELL COUNT DECREASED [None]
